FAERS Safety Report 17970369 (Version 1)
Quarter: 2020Q3

REPORT INFORMATION
  Report Type: Spontaneous
  Country: GB (occurrence: GB)
  Receive Date: 20200702
  Receipt Date: 20200702
  Transmission Date: 20201103
  Serious: Yes (Hospitalization)
  Sender: FDA-Public Use
  Company Number: GB-ROCHE-2634562

PATIENT
  Age: 75 Year
  Sex: Male
  Weight: 94 kg

DRUGS (9)
  1. OMEPRAZOLE. [Concomitant]
     Active Substance: OMEPRAZOLE
  2. CO?DYDRAMOL [Concomitant]
     Active Substance: ACETAMINOPHEN\DIHYDROCODEINE
  3. PREDNISOLONE. [Concomitant]
     Active Substance: PREDNISOLONE
     Indication: EYE DISORDER
     Route: 065
  4. CARBOMER [Concomitant]
     Active Substance: CARBOMER
  5. ALENDRONIC ACID [Concomitant]
     Active Substance: ALENDRONIC ACID
  6. METHYLPREDNISOLONE. [Concomitant]
     Active Substance: METHYLPREDNISOLONE
     Indication: EYE DISORDER
     Route: 042
     Dates: start: 202003
  7. STEXEROL D3 [Concomitant]
  8. DUOTRAV [Concomitant]
     Active Substance: TIMOLOL MALEATE\TRAVOPROST
  9. TOCILIZUMAB. [Suspect]
     Active Substance: TOCILIZUMAB
     Indication: GIANT CELL ARTERITIS
     Route: 058
     Dates: start: 20200327, end: 20200508

REACTIONS (7)
  - Sensory loss [Recovering/Resolving]
  - Myelitis [Recovering/Resolving]
  - Muscular weakness [Recovering/Resolving]
  - CSF protein increased [Recovering/Resolving]
  - Peroneal nerve palsy [Recovering/Resolving]
  - Polyuria [Unknown]
  - Condition aggravated [Unknown]

NARRATIVE: CASE EVENT DATE: 20200408
